FAERS Safety Report 6128459-2 (Version None)
Quarter: 2009Q1

REPORT INFORMATION
  Report Type: 
  Country: None (occurrence: None)
  Receive Date: 20090323
  Receipt Date: 20090312
  Transmission Date: 20090719
  Serious: Yes (Other)
  Sender: FDA-Public Use
  Company Number: JP-AVENTIS-200910184JP

PATIENT
  Age: 19 Year
  Sex: Female

DRUGS (1)
  1. ALLEGRA [Suspect]
     Route: 048
     Dates: start: 20081001, end: 20090115

REACTIONS (4)
  - ALANINE AMINOTRANSFERASE INCREASED [None]
  - CHOLESTATIC LIVER INJURY [None]
  - HEPATIC FUNCTION ABNORMAL [None]
  - MALAISE [None]
